FAERS Safety Report 8604932 (Version 5)
Quarter: 2013Q1

REPORT INFORMATION
  Report Type: Spontaneous
  Country: BR (occurrence: BR)
  Receive Date: 20120608
  Receipt Date: 20130114
  Transmission Date: 20140127
  Serious: Yes (Hospitalization, Other)
  Sender: FDA-Public Use
  Company Number: BR-ROCHE-1075519

PATIENT
  Age: 59 Year
  Sex: Female

DRUGS (4)
  1. XOLAIR [Suspect]
     Indication: ASTHMA
     Route: 065
     Dates: start: 20120425
  2. XOLAIR [Suspect]
     Route: 065
     Dates: start: 201208
  3. DUOVENT [Concomitant]
  4. SERETIDE [Concomitant]

REACTIONS (11)
  - Lung disorder [Recovering/Resolving]
  - Bronchospasm [Recovering/Resolving]
  - Tonsillitis [Recovering/Resolving]
  - Oropharyngeal pain [Recovering/Resolving]
  - Pain in extremity [Recovering/Resolving]
  - Speech disorder [Recovering/Resolving]
  - Depressed mood [Recovering/Resolving]
  - Pneumonia [Recovering/Resolving]
  - Asthma [Recovering/Resolving]
  - Hypersensitivity [Recovering/Resolving]
  - Feeling abnormal [Recovered/Resolved]
